FAERS Safety Report 5158372-9 (Version None)
Quarter: 2006Q4

REPORT INFORMATION
  Report Type: 
  Country: None (occurrence: None)
  Receive Date: 20061128
  Receipt Date: 20060817
  Transmission Date: 20070319
  Serious: No
  Sender: FDA-Public Use
  Company Number: S2006US14867

PATIENT
  Age: 67 Year
  Sex: Female

DRUGS (6)
  1. LANOXIN [Suspect]
  2. TOPROL-XL [Suspect]
     Indication: DRUG USE FOR UNKNOWN INDICATION
  3. RYTHMOL [Suspect]
     Indication: DRUG USE FOR UNKNOWN INDICATION
  4. ASPIRIN [Suspect]
     Indication: DRUG USE FOR UNKNOWN INDICATION
  5. PLAVIX [Suspect]
     Indication: DRUG USE FOR UNKNOWN INDICATION
  6. LOTREL [Suspect]
     Route: 065

REACTIONS (1)
  - GINGIVAL SWELLING [None]
